FAERS Safety Report 11165667 (Version 1)
Quarter: 2015Q2

REPORT INFORMATION
  Report Type: Spontaneous
  Country: US (occurrence: None)
  Receive Date: 20150603
  Receipt Date: 20150603
  Transmission Date: 20150821
  Serious: Yes (Life-Threatening)
  Sender: FDA-Public Use
  Company Number: None

PATIENT
  Age: 25 Year
  Sex: Female

DRUGS (1)
  1. CYTOTEC [Suspect]
     Active Substance: MISOPROSTOL
     Indication: LABOUR INDUCTION
     Dosage: 1 PILL; 1/2 PILL TWICE
     Route: 067

REACTIONS (11)
  - Uterine hyperstimulation [None]
  - Stress [None]
  - Feeding disorder neonatal [None]
  - Oropharyngeal pain [None]
  - Maternal exposure during delivery [None]
  - Meconium in amniotic fluid [None]
  - Foetal heart rate decreased [None]
  - Hypertonia [None]
  - Apnoea neonatal [None]
  - Blood glucose decreased [None]
  - Maternal drugs affecting foetus [None]

NARRATIVE: CASE EVENT DATE: 20060727
